FAERS Safety Report 6686172-7 (Version None)
Quarter: 2010Q2

REPORT INFORMATION
  Report Type: 
  Country: None (occurrence: None)
  Receive Date: 20100419
  Receipt Date: 20100408
  Transmission Date: 20101027
  Serious: Yes (Other)
  Sender: FDA-Public Use
  Company Number: PHHY2010US22171

PATIENT
  Sex: Female

DRUGS (2)
  1. DIOVAN [Suspect]
     Dosage: 80 MG
     Dates: start: 20100405
  2. ATENOLOL [Concomitant]
     Dosage: 100 MG

REACTIONS (2)
  - FATIGUE [None]
  - LIP SWELLING [None]
